FAERS Safety Report 6332189-1 (Version None)
Quarter: 2009Q3

REPORT INFORMATION
  Report Type: 
  Country: None (occurrence: None)
  Receive Date: 20090828
  Receipt Date: 20090819
  Transmission Date: 20100115
  Serious: Yes (Hospitalization)
  Sender: FDA-Public Use
  Company Number: JP-ASTRAZENECA-2009SE06450

PATIENT
  Sex: Male
  Weight: 80 kg

DRUGS (9)
  1. ECARD [Suspect]
     Indication: HYPERTENSION
     Route: 048
     Dates: start: 20090623, end: 20090729
  2. ACTOS [Concomitant]
     Route: 048
     Dates: start: 20080922, end: 20090630
  3. BASEN OD TABLETS 0.3 [Concomitant]
     Route: 048
     Dates: start: 20080922, end: 20090630
  4. PLETAL [Concomitant]
     Indication: CEREBROVASCULAR ACCIDENT PROPHYLAXIS
     Route: 048
     Dates: start: 20090701
  5. ASPIRIN [Concomitant]
     Indication: CEREBROVASCULAR ACCIDENT PROPHYLAXIS
     Route: 048
     Dates: start: 20080922
  6. GASTER D [Concomitant]
     Indication: PROPHYLAXIS AGAINST GASTROINTESTINAL ULCER
     Route: 048
     Dates: start: 20090701
  7. CRESTOR [Concomitant]
     Indication: HYPERCHOLESTEROLAEMIA
     Route: 048
     Dates: start: 20090715
  8. TICLOPIDINE HCL [Concomitant]
     Route: 048
     Dates: start: 20080922, end: 20090630
  9. LIPITOR [Concomitant]
     Route: 048
     Dates: start: 20080922, end: 20090630

REACTIONS (1)
  - CEREBRAL INFARCTION [None]
